FAERS Safety Report 4728766-1 (Version None)
Quarter: 2005Q3

REPORT INFORMATION
  Report Type: 
  Country: None (occurrence: None)
  Receive Date: 20050729
  Receipt Date: 20050718
  Transmission Date: 20060218
  Serious: Yes (Hospitalization)
  Sender: FDA-Public Use
  Company Number: FR-GLAXOSMITHKLINE-B0388533A

PATIENT
  Age: 65 Year
  Sex: Female
  Weight: 65 kg

DRUGS (10)
  1. AUGMENTIN '125' [Suspect]
     Indication: BRONCHITIS
     Route: 048
     Dates: start: 20050613, end: 20050622
  2. DIAMICRON [Concomitant]
     Dosage: 30MG TWICE PER DAY
     Route: 048
     Dates: end: 20050630
  3. CORDARONE [Concomitant]
     Route: 048
     Dates: end: 20050630
  4. VASTEN 20 [Concomitant]
     Dosage: 40MG PER DAY
     Route: 048
     Dates: end: 20050630
  5. LASILIX [Concomitant]
     Route: 065
     Dates: end: 20050630
  6. COVERSYL [Concomitant]
     Route: 065
     Dates: end: 20050630
  7. NEXIUM [Concomitant]
     Route: 065
     Dates: end: 20050630
  8. DIOSMINE [Concomitant]
     Route: 065
     Dates: end: 20050630
  9. KARDEGIC [Concomitant]
     Route: 065
  10. CORDIPATCH [Concomitant]
     Route: 065
     Dates: end: 20050630

REACTIONS (6)
  - ABDOMINAL PAIN UPPER [None]
  - ALANINE AMINOTRANSFERASE INCREASED [None]
  - ASPARTATE AMINOTRANSFERASE INCREASED [None]
  - BLOOD BILIRUBIN ABNORMAL [None]
  - GAMMA-GLUTAMYLTRANSFERASE INCREASED [None]
  - VOMITING [None]
